FAERS Safety Report 8776573 (Version 1)
Quarter: 2012Q4

REPORT INFORMATION
  Report Type: 
  Country: AR (occurrence: AR)
  Receive Date: 20120910
  Receipt Date: 20120910
  Transmission Date: 20130627
  Serious: Yes (Hospitalization)
  Sender: FDA-Public Use
  Company Number: PHHY2012AR077615

PATIENT
  Sex: Female

DRUGS (1)
  1. DIOVAN [Suspect]
     Indication: BLOOD PRESSURE ABNORMAL
     Dosage: 80 mg, daily

REACTIONS (2)
  - Cartilage injury [Recovering/Resolving]
  - Pain [Recovering/Resolving]
